FAERS Safety Report 26045742 (Version 1)
Quarter: 2025Q4

REPORT INFORMATION
  Report Type: Spontaneous
  Country: US (occurrence: None)
  Receive Date: 20251113
  Receipt Date: 20251113
  Transmission Date: 20260117
  Serious: Yes (Other)
  Sender: FDA-CTU
  Company Number: None

PATIENT
  Sex: Male

DRUGS (11)
  1. BOSULIF [Suspect]
     Active Substance: BOSUTINIB MONOHYDRATE
     Dosage: FREQUENCY : DAILY;?
     Route: 048
     Dates: start: 20231009
  2. AMLODIPINE [Concomitant]
     Active Substance: AMLODIPINE BESYLATE
  3. AMLODIPINE TAB5MG [Concomitant]
  4. ASPIR-81 TAB 81 MG EC [Concomitant]
  5. AZELASTINE ORO 0.05% [Concomitant]
  6. CALCIUM+D3 TAB 600-800 [Concomitant]
  7. CLOTRIM/BETA CREDI PROP [Concomitant]
  8. DULOXETINE CAP 30MG [Concomitant]
  9. ELIQUIS [Concomitant]
     Active Substance: APIXABAN
  10. FLOMAX [Concomitant]
     Active Substance: TAMSULOSIN HYDROCHLORIDE
  11. IMATINIB MESYLATE [Concomitant]
     Active Substance: IMATINIB MESYLATE

REACTIONS (1)
  - Surgery [None]
